FAERS Safety Report 5474223-7 (Version None)
Quarter: 2007Q4

REPORT INFORMATION
  Report Type: 
  Country: None (occurrence: None)
  Receive Date: 20071002
  Receipt Date: 20070627
  Transmission Date: 20080405
  Serious: No
  Sender: FDA-Public Use
  Company Number: US-ASTRAZENECA-2007UW13735

PATIENT
  Age: 69 Year
  Sex: Female
  Weight: 68 kg

DRUGS (5)
  1. ARIMIDEX [Suspect]
     Indication: BREAST CANCER
     Route: 048
     Dates: start: 20061001, end: 20061101
  2. METOPROLOL [Concomitant]
  3. LISINOPRIL [Concomitant]
  4. CORTISONE INJECTION [Concomitant]
  5. NIFEDIPINE [Concomitant]
     Indication: HYPERTENSION
     Route: 048

REACTIONS (10)
  - ARTHRALGIA [None]
  - COUGH [None]
  - FATIGUE [None]
  - JOINT DISLOCATION [None]
  - MYALGIA [None]
  - NAUSEA [None]
  - PHARYNGOLARYNGEAL PAIN [None]
  - PRURITUS [None]
  - RASH [None]
  - SQUAMOUS CELL CARCINOMA [None]
